FAERS Safety Report 8594416-X (Version None)
Quarter: 2012Q3

REPORT INFORMATION
  Report Type: 
  Country: None (occurrence: None)
  Receive Date: 20120815
  Receipt Date: 20120806
  Transmission Date: 20120928
  Serious: No
  Sender: FDA-Public Use
  Company Number: US-BIOGENIDEC-2012BI029817

PATIENT
  Age: 27 Year
  Sex: Male

DRUGS (2)
  1. AVONEX [Suspect]
     Indication: MULTIPLE SCLEROSIS
     Route: 030
     Dates: start: 20120706, end: 20120727
  2. AVONEX [Suspect]
     Route: 030
     Dates: start: 20120803

REACTIONS (6)
  - INFLUENZA LIKE ILLNESS [None]
  - ARTHRALGIA [None]
  - INJECTION SITE PAIN [None]
  - BACK PAIN [None]
  - INSOMNIA [None]
  - MUSCLE SPASMS [None]
